FAERS Safety Report 10661428 (Version 1)
Quarter: 2014Q4

REPORT INFORMATION
  Report Type: Spontaneous
  Country: US (occurrence: None)
  Receive Date: 20141217
  Receipt Date: 20141217
  Transmission Date: 20150529
  Serious: Yes (Disabling)
  Sender: FDA-Public Use
  Company Number: None

PATIENT
  Age: 66 Year
  Sex: Male
  Weight: 118.39 kg

DRUGS (8)
  1. TERAZOSIN [Concomitant]
     Active Substance: TERAZOSIN\TERAZOSIN HYDROCHLORIDE
  2. KCL [Concomitant]
     Active Substance: POTASSIUM CHLORIDE
  3. ACIDOPHILOUS PROBIOTICS [Concomitant]
  4. CIALIS [Suspect]
     Active Substance: TADALAFIL
     Indication: BENIGN PROSTATIC HYPERPLASIA
     Route: 048
     Dates: start: 20060101, end: 20141205
  5. HYDROCHLOROTHIAZIDE. [Concomitant]
     Active Substance: HYDROCHLOROTHIAZIDE
  6. OMEPRAZOLE. [Concomitant]
     Active Substance: OMEPRAZOLE
  7. MAGNESIUM [Concomitant]
     Active Substance: MAGNESIUM
  8. LOSARTAN [Concomitant]
     Active Substance: LOSARTAN

REACTIONS (2)
  - Sudden hearing loss [None]
  - Tinnitus [None]

NARRATIVE: CASE EVENT DATE: 20141208
